FAERS Safety Report 8954284 (Version 1)
Quarter: 2012Q4

REPORT INFORMATION
  Report Type: Spontaneous
  Country: GB (occurrence: None)
  Receive Date: 20121130
  Receipt Date: 20121130
  Transmission Date: 20130627
  Serious: Yes (Hospitalization)
  Sender: FDA-Public Use
  Company Number: 2012-2633-SPO

PATIENT
  Age: 66 Year
  Sex: Female
  Weight: 69 kg

DRUGS (7)
  1. ESTRADIOL [Suspect]
     Indication: PRODUCT USED FOR UNKNOWN INDICATION
     Dates: start: 20120816
  2. CLOTRIMAZOLE (CLOTRIMAZOLE) [Concomitant]
  3. ESTRIOL (ESTRIOL) [Concomitant]
  4. METRONIDAZOLE (METRONIDAZOLE) [Concomitant]
  5. NITROFURANTOIN (NITROFURANTOIN) [Concomitant]
  6. SUDOCREM (BENZYL ALCOHOL, BENZYL CLINNAMATE, BENZYL BENZOATE, ZINC OXIDE, LANOLIN) [Concomitant]
  7. OMEPRAZOLE (OMEPRAZOLE) [Concomitant]

REACTIONS (2)
  - Local reaction [None]
  - Pain [None]
